FAERS Safety Report 7900263-1 (Version None)
Quarter: 2011Q4

REPORT INFORMATION
  Report Type: 
  Country: None (occurrence: None)
  Receive Date: 20111108
  Receipt Date: 20111028
  Transmission Date: 20120403
  Serious: Yes (Other)
  Sender: FDA-Public Use
  Company Number: US-JNJFOC-20111013211

PATIENT
  Sex: Female
  Weight: 81.65 kg

DRUGS (8)
  1. REMICADE [Suspect]
     Indication: COLITIS ULCERATIVE
     Route: 042
     Dates: start: 20110701
  2. LISINOPRIL [Concomitant]
     Indication: HYPERTENSION
     Route: 048
     Dates: start: 20010101
  3. ALLEGRA [Concomitant]
     Indication: SEASONAL ALLERGY
     Route: 048
     Dates: start: 19810101
  4. LEXAPRO [Concomitant]
     Indication: DEPRESSION
     Route: 065
  5. PRILOSEC [Concomitant]
     Indication: GASTROOESOPHAGEAL REFLUX DISEASE
     Route: 048
     Dates: start: 20060101
  6. VITAMINS NOS [Concomitant]
     Indication: MEDICAL DIET
     Route: 048
  7. ESTRADIOL [Concomitant]
     Indication: HORMONE REPLACEMENT THERAPY
     Route: 048
     Dates: start: 19960101
  8. CALCIUM [Concomitant]
     Indication: MEDICAL DIET
     Route: 048

REACTIONS (6)
  - HYPERSOMNIA [None]
  - MALAISE [None]
  - BACK PAIN [None]
  - DYSSTASIA [None]
  - RENAL PAIN [None]
  - PELVIC PAIN [None]
